FAERS Safety Report 12818143 (Version 1)
Quarter: 2016Q4

REPORT INFORMATION
  Report Type: Spontaneous
  Country: US (occurrence: US)
  Receive Date: 20161006
  Receipt Date: 20161006
  Transmission Date: 20170207
  Serious: Yes (Disabling, Other)
  Sender: FDA-Public Use
  Company Number: None

PATIENT
  Age: 62 Year
  Sex: Female
  Weight: 83.46 kg

DRUGS (17)
  1. ALTACE [Concomitant]
     Active Substance: RAMIPRIL
  2. ATORVASTATIN [Suspect]
     Active Substance: ATORVASTATIN
     Indication: CEREBROVASCULAR ACCIDENT
     Dosage: #90 1X DAILY BY MOUTH
     Route: 048
     Dates: end: 20160914
  3. LANTUS SOLOSTAR [Concomitant]
     Active Substance: INSULIN GLARGINE
  4. ONDANSETRON [Concomitant]
     Active Substance: ONDANSETRON
  5. MULTIVITAMIN [Concomitant]
     Active Substance: VITAMINS
  6. VITAMIN C [Concomitant]
     Active Substance: ASCORBIC ACID
  7. SPIRONOLACTONE. [Concomitant]
     Active Substance: SPIRONOLACTONE
  8. PROBIOTICS [Concomitant]
     Active Substance: PROBIOTICS NOS
  9. GLUMETZA [Concomitant]
     Active Substance: METFORMIN HYDROCHLORIDE
  10. ALLEGRA [Concomitant]
     Active Substance: FEXOFENADINE HYDROCHLORIDE
  11. OMEPRAZOLE. [Concomitant]
     Active Substance: OMEPRAZOLE
  12. GABAPENTEN [Concomitant]
  13. GLIMEPIRIDE. [Concomitant]
     Active Substance: GLIMEPIRIDE
  14. CRESTOR [Concomitant]
     Active Substance: ROSUVASTATIN CALCIUM
  15. NUCYNTA [Concomitant]
     Active Substance: TAPENTADOL HYDROCHLORIDE
  16. CLOPIDOGREL [Concomitant]
     Active Substance: CLOPIDOGREL BISULFATE
  17. ZANAFLEX [Concomitant]
     Active Substance: TIZANIDINE HYDROCHLORIDE

REACTIONS (9)
  - Fatigue [None]
  - Chromaturia [None]
  - Dizziness [None]
  - Arthralgia [None]
  - Nausea [None]
  - Abdominal pain [None]
  - Confusional state [None]
  - Pain in extremity [None]
  - Balance disorder [None]

NARRATIVE: CASE EVENT DATE: 201605
